FAERS Safety Report 16666243 (Version 1)
Quarter: 2019Q3

REPORT INFORMATION
  Report Type: Spontaneous
  Country: US (occurrence: US)
  Receive Date: 20190805
  Receipt Date: 20190805
  Transmission Date: 20191004
  Serious: Yes (Other)
  Sender: FDA-Public Use
  Company Number: US-ACCORD-093755

PATIENT
  Age: 51 Year
  Sex: Female
  Weight: 110.22 kg

DRUGS (10)
  1. PARAPLATIN [Suspect]
     Active Substance: CARBOPLATIN
     Indication: BREAST CANCER
     Dosage: NUMBER OF CYCLES: 06?LAST TREATMENT DATE: 30-JUL-2015
     Dates: start: 20150331
  2. HERCEPTIN [Suspect]
     Active Substance: TRASTUZUMAB
     Indication: BREAST CANCER
     Dosage: NUMBER OF CYCLES: 06?LAST TREATMENT DATE: 30-JUL-2015
     Dates: start: 20150331
  3. ZOFRAN [Concomitant]
     Active Substance: ONDANSETRON HYDROCHLORIDE
     Dates: start: 19810101
  4. PERJETA [Suspect]
     Active Substance: PERTUZUMAB
     Indication: BREAST CANCER
     Dosage: NUMBER OF CYCLES: 06?LAST TREATMENT DATE: 30-JUL-2015
     Dates: start: 20150331
  5. ELIQUIS [Concomitant]
     Active Substance: APIXABAN
     Dates: start: 19810101
  6. ULTRACET [Concomitant]
     Active Substance: ACETAMINOPHEN\TRAMADOL HYDROCHLORIDE
     Dates: start: 19810101
  7. PRILOSEC [Concomitant]
     Active Substance: OMEPRAZOLE MAGNESIUM
     Dates: start: 19810101
  8. AZACORT [Concomitant]
     Dates: start: 19810101
  9. ANASTROZOLE. [Concomitant]
     Active Substance: ANASTROZOLE
     Dates: start: 19810101
  10. DOCETAXEL ACCORD [Suspect]
     Active Substance: DOCETAXEL
     Indication: BREAST CANCER
     Dosage: NUMBER OF CYCLES: 06?LAST TREATMENT DATE: 30-JUL-2015
     Dates: start: 20150331

REACTIONS (1)
  - Alopecia [Not Recovered/Not Resolved]

NARRATIVE: CASE EVENT DATE: 20160401
